FAERS Safety Report 23832014 (Version 1)
Quarter: 2024Q2

REPORT INFORMATION
  Report Type: Spontaneous
  Country: US (occurrence: US)
  Receive Date: 20240508
  Receipt Date: 20240508
  Transmission Date: 20240716
  Serious: No
  Sender: FDA-Public Use
  Company Number: US-PFIZER INC-202400103105

PATIENT
  Age: 40 Year
  Sex: Male

DRUGS (6)
  1. XELJANZ [Suspect]
     Active Substance: TOFACITINIB CITRATE
     Dosage: 10 MG, 2X/DAY
     Dates: start: 20240123
  2. ATORVASTATIN [Concomitant]
     Active Substance: ATORVASTATIN
  3. BUDESONIDE [Concomitant]
     Active Substance: BUDESONIDE
  4. PREDNISONE [Concomitant]
     Active Substance: PREDNISONE
  5. OMEPRAZOLE [Concomitant]
     Active Substance: DONEPEZIL HYDROCHLORIDE\OMEPRAZOLE\OMEPRAZOLE MAGNESIUM
  6. APRISO [Concomitant]
     Active Substance: MESALAMINE

REACTIONS (1)
  - Therapeutic product effect incomplete [Not Recovered/Not Resolved]
